FAERS Safety Report 15020760 (Version 1)
Quarter: 2018Q2

REPORT INFORMATION
  Report Type: Spontaneous
  Country: US (occurrence: US)
  Receive Date: 20180618
  Receipt Date: 20180618
  Transmission Date: 20180711
  Serious: Yes (Hospitalization)
  Sender: FDA-Public Use
  Company Number: US-PFIZER INC-2018241397

PATIENT
  Age: 53 Year
  Sex: Male
  Weight: 129.27 kg

DRUGS (2)
  1. CIPRO [Concomitant]
     Active Substance: CIPROFLOXACIN HYDROCHLORIDE
     Dosage: UNK
  2. ZYVOX [Suspect]
     Active Substance: LINEZOLID
     Indication: INFECTION
     Dosage: UNK, 2X/DAY

REACTIONS (10)
  - Nausea [Recovered/Resolved]
  - Vomiting [Recovered/Resolved]
  - Decreased appetite [Recovered/Resolved]
  - Epigastric discomfort [Unknown]
  - Haemorrhoidal haemorrhage [Unknown]
  - Haematochezia [Unknown]
  - Haemoglobin decreased [Not Recovered/Not Resolved]
  - Dysgeusia [Recovered/Resolved]
  - Diarrhoea [Recovering/Resolving]
  - Polyp [Unknown]

NARRATIVE: CASE EVENT DATE: 201805
